FAERS Safety Report 15242995 (Version 1)
Quarter: 2018Q3

REPORT INFORMATION
  Report Type: Spontaneous
  Country: US (occurrence: US)
  Receive Date: 20180806
  Receipt Date: 20180806
  Transmission Date: 20181010
  Serious: No
  Sender: FDA-Public Use
  Company Number: US-AUROBINDO-AUR-APL-2018-024478

PATIENT
  Sex: Male

DRUGS (1)
  1. ROSUVASTATIN CALCIUM TABLET 20 MG [Suspect]
     Active Substance: ROSUVASTATIN CALCIUM
     Indication: PRODUCT USED FOR UNKNOWN INDICATION
     Dosage: 20 MILLIGRAM
     Route: 065

REACTIONS (2)
  - Diarrhoea [Recovered/Resolved]
  - Hypersensitivity [Recovered/Resolved]
